FAERS Safety Report 18494168 (Version 2)
Quarter: 2020Q4

REPORT INFORMATION
  Report Type: Report from Study
  Country: DE (occurrence: DE)
  Receive Date: 20201111
  Receipt Date: 20201117
  Transmission Date: 20210114
  Serious: Yes (Hospitalization, Other)
  Sender: FDA-Public Use
  Company Number: DE-BRISTOL-MYERS SQUIBB COMPANY-BMS-2020-091648

PATIENT
  Age: 65 Year
  Sex: Female
  Weight: 50 kg

DRUGS (2)
  1. LENVATINIB [Suspect]
     Active Substance: LENVATINIB
     Indication: HEPATOCELLULAR CARCINOMA
     Dosage: UNK, CYCLE 1
     Route: 065
     Dates: start: 20201016, end: 20201028
  2. NIVOLUMAB [Suspect]
     Active Substance: NIVOLUMAB
     Indication: HEPATOCELLULAR CARCINOMA
     Dosage: UNK, CYCLE 1
     Route: 065
     Dates: start: 20201016, end: 20201016

REACTIONS (2)
  - Hepatobiliary disease [Recovered/Resolved with Sequelae]
  - Tumour necrosis [Recovered/Resolved with Sequelae]

NARRATIVE: CASE EVENT DATE: 20201029
